FAERS Safety Report 15597577 (Version 1)
Quarter: 2018Q4

REPORT INFORMATION
  Report Type: Report from Study
  Country: US (occurrence: US)
  Receive Date: 20181108
  Receipt Date: 20181108
  Transmission Date: 20190205
  Serious: Yes (Death, Hospitalization, Other)
  Sender: FDA-Public Use
  Company Number: US-ASTELLAS-2017US024508

PATIENT
  Age: 49 Year
  Sex: Male

DRUGS (17)
  1. TACROLIMUS. [Suspect]
     Active Substance: TACROLIMUS
     Dosage: 9 MG (4MG IN AM AND 5MG IN PM)
     Route: 048
     Dates: start: 20170627, end: 20170627
  2. TACROLIMUS. [Suspect]
     Active Substance: TACROLIMUS
     Indication: PROPHYLAXIS AGAINST TRANSPLANT REJECTION
     Route: 048
     Dates: start: 20170222
  3. TACROLIMUS. [Suspect]
     Active Substance: TACROLIMUS
     Dosage: 9 MG (4MG IN AM AND 5MG IN PM)
     Route: 048
     Dates: start: 20170629
  4. AMLODIPINE [Concomitant]
     Active Substance: AMLODIPINE BESYLATE
     Indication: HYPERTENSION
     Route: 048
  5. PANTOPRAZOLE [Concomitant]
     Active Substance: PANTOPRAZOLE
     Indication: GASTROOESOPHAGEAL REFLUX DISEASE
     Route: 048
  6. INSULIN GLARGINE [Concomitant]
     Active Substance: INSULIN GLARGINE
     Indication: TYPE 2 DIABETES MELLITUS
     Route: 058
  7. MYCOPHENOLATE SODIUM [Concomitant]
     Active Substance: MYCOPHENOLATE SODIUM
     Indication: PROPHYLAXIS AGAINST TRANSPLANT REJECTION
     Route: 048
  8. ATORVASTATIN [Concomitant]
     Active Substance: ATORVASTATIN
     Indication: HYPERCHOLESTEROLAEMIA
     Route: 048
  9. TACROLIMUS. [Suspect]
     Active Substance: TACROLIMUS
     Dosage: 9 MG (4MG IN AM AND 5MG IN PM)
     Route: 048
     Dates: start: 20170512, end: 20170619
  10. TACROLIMUS. [Suspect]
     Active Substance: TACROLIMUS
     Dosage: 9 MG (4MG IN AM AND 5MG IN PM)
     Route: 048
     Dates: start: 20170623, end: 20170626
  11. PANTOPRAZOLE [Concomitant]
     Active Substance: PANTOPRAZOLE
     Indication: DYSPEPSIA
  12. VALGANCICLOVIR. [Concomitant]
     Active Substance: VALGANCICLOVIR
     Indication: PROPHYLAXIS
     Route: 048
  13. PREDNISONE. [Concomitant]
     Active Substance: PREDNISONE
     Indication: PROPHYLAXIS AGAINST TRANSPLANT REJECTION
     Route: 048
  14. TACROLIMUS. [Suspect]
     Active Substance: TACROLIMUS
     Route: 048
     Dates: start: 20170622, end: 20170622
  15. TACROLIMUS. [Suspect]
     Active Substance: TACROLIMUS
     Route: 048
     Dates: start: 20170628, end: 20170628
  16. INSULIN LISPRO [Concomitant]
     Active Substance: INSULIN LISPRO
     Indication: TYPE 2 DIABETES MELLITUS
     Dosage: 0-18 UNITS, THRICE DAILY
     Route: 058
  17. SULFAMETHOXAZOLE AND TRIMETHOPRIM [Concomitant]
     Active Substance: SULFAMETHOXAZOLE\TRIMETHOPRIM
     Indication: ANTIFUNGAL PROPHYLAXIS
     Dosage: 1 TABLET (400 MG/80 MG), ONCE DAILY
     Route: 048

REACTIONS (4)
  - Death [Fatal]
  - Respiratory failure [Recovered/Resolved]
  - Sepsis [Recovering/Resolving]
  - Acute kidney injury [Recovered/Resolved]

NARRATIVE: CASE EVENT DATE: 20170619
